FAERS Safety Report 7638594-5 (Version None)
Quarter: 2011Q3

REPORT INFORMATION
  Report Type: 
  Country: None (occurrence: None)
  Receive Date: 20110727
  Receipt Date: 20110722
  Transmission Date: 20111222
  Serious: Yes (Death, Other)
  Sender: FDA-Public Use
  Company Number: US-ASTELLAS-2011US003732

PATIENT
  Sex: Female

DRUGS (1)
  1. ERLOTINIB HYDROCHLORIDE [Suspect]
     Indication: LUNG CARCINOMA CELL TYPE UNSPECIFIED STAGE 0
     Dosage: 150 MG, UID/QD
     Route: 048
     Dates: start: 20110620

REACTIONS (8)
  - AMNESIA [None]
  - DYSPHAGIA [None]
  - ERYTHEMA [None]
  - DECREASED APPETITE [None]
  - DEATH [None]
  - WEIGHT DECREASED [None]
  - FATIGUE [None]
  - VOCAL CORD PARALYSIS [None]
